FAERS Safety Report 11236388 (Version 1)
Quarter: 2015Q3

REPORT INFORMATION
  Report Type: Report from Study
  Country: US (occurrence: US)
  Receive Date: 20150702
  Receipt Date: 20150702
  Transmission Date: 20151125
  Serious: Yes (Hospitalization)
  Sender: FDA-Public Use
  Company Number: US-ABBVIE-15P-163-1419627-00

PATIENT
  Age: 60 Year

DRUGS (2)
  1. VIEKIRA PAK [Suspect]
     Active Substance: DASABUVIR\OMBITASVIR\PARITAPREVIR\RITONAVIR
     Indication: HEPATITIS C
     Route: 048
  2. MODERIBA [Suspect]
     Active Substance: RIBAVIRIN
     Indication: HEPATITIS C
     Route: 065

REACTIONS (4)
  - Blood sodium decreased [Recovering/Resolving]
  - Confusional state [Recovering/Resolving]
  - Unevaluable event [Recovering/Resolving]
  - Drug dose omission [Unknown]

NARRATIVE: CASE EVENT DATE: 20150621
